FAERS Safety Report 4444623-2 (Version None)
Quarter: 2004Q3

REPORT INFORMATION
  Report Type: 
  Country: None (occurrence: None)
  Receive Date: 20040907
  Receipt Date: 20040823
  Transmission Date: 20050211
  Serious: Yes (Hospitalization)
  Sender: FDA-Public Use
  Company Number: 04P-150-0272346-00

PATIENT
  Age: 84 Year
  Sex: Female

DRUGS (5)
  1. BIAXIN [Suspect]
     Indication: PNEUMONIA
     Dosage: 500 MG, 1 IN 1 D, PER ORAL
     Route: 048
     Dates: start: 20040524, end: 20040607
  2. ZOCOR [Suspect]
     Indication: HYPERCHOLESTEROLAEMIA
     Dosage: 80 MG, 1 IN 1 D, PER ORAL
     Route: 048
     Dates: end: 20040612
  3. AMLODIPINE BESYLATE [Concomitant]
  4. ACEBUTOLOL HYDROCHLORIDE [Concomitant]
  5. ISOSORBIDE MONONITRATE [Concomitant]

REACTIONS (4)
  - ALANINE AMINOTRANSFERASE ABNORMAL [None]
  - ASPARTATE AMINOTRANSFERASE ABNORMAL [None]
  - BLOOD CREATINE PHOSPHOKINASE INCREASED [None]
  - MUSCULAR WEAKNESS [None]
